FAERS Safety Report 6938044-8 (Version None)
Quarter: 2010Q3

REPORT INFORMATION
  Report Type: 
  Country: None (occurrence: None)
  Receive Date: 20100823
  Receipt Date: 20100823
  Transmission Date: 20110219
  Serious: Yes (Hospitalization)
  Sender: FDA-Public Use
  Company Number: None

PATIENT
  Sex: Male
  Weight: 76.2 kg

DRUGS (3)
  1. METHOTREXATE [Suspect]
     Dosage: 20 MG
  2. SIROLIMUS [Concomitant]
  3. TACROLIMUS [Concomitant]

REACTIONS (10)
  - ABDOMINAL PAIN [None]
  - ASCITES [None]
  - BLOOD PRESSURE DECREASED [None]
  - GENERAL PHYSICAL HEALTH DETERIORATION [None]
  - HEPATIC FAILURE [None]
  - MUCOSAL INFLAMMATION [None]
  - MULTI-ORGAN FAILURE [None]
  - RENAL FAILURE [None]
  - RESPIRATORY DISTRESS [None]
  - VENOOCCLUSIVE DISEASE [None]
